FAERS Safety Report 5261793-7 (Version None)
Quarter: 2007Q1

REPORT INFORMATION
  Report Type: 
  Country: None (occurrence: None)
  Receive Date: 20070308
  Receipt Date: 20070221
  Transmission Date: 20070707
  Serious: Yes (Life-Threatening, Hospitalization)
  Sender: FDA-Public Use
  Company Number: 230924K06USA

PATIENT
  Age: 49 Year
  Sex: Female

DRUGS (6)
  1. REBIF [Suspect]
     Indication: MULTIPLE SCLEROSIS
     Dosage: 44 MCG
     Dates: start: 20050930, end: 20060110
  2. PROZAC [Concomitant]
  3. TOPROL-XL [Concomitant]
  4. TRAMADOL (TRAMADOL /00599201/) [Concomitant]
  5. TRAZODONE HCL [Concomitant]
  6. NEURONTIN [Concomitant]

REACTIONS (6)
  - GAIT DISTURBANCE [None]
  - LIVER FUNCTION TEST ABNORMAL [None]
  - RENAL FAILURE ACUTE [None]
  - THROMBOCYTOPENIA [None]
  - UPPER GASTROINTESTINAL HAEMORRHAGE [None]
  - UROSEPSIS [None]
